FAERS Safety Report 12320961 (Version 1)
Quarter: 2016Q2

REPORT INFORMATION
  Report Type: Spontaneous
  Country: US (occurrence: US)
  Receive Date: 20160502
  Receipt Date: 20160502
  Transmission Date: 20160815
  Serious: Yes (Other)
  Sender: FDA-Public Use
  Company Number: US-ALVOGEN-2016-ALVOGEN-023816

PATIENT
  Age: 50 Year
  Sex: Male

DRUGS (5)
  1. DOXORUBICIN [Suspect]
     Active Substance: DOXORUBICIN
     Indication: MARGINAL ZONE LYMPHOMA
     Dosage: THIRD CYCLE OF R-CHOP 2 WEEKS PRIOR TO PRESENTATION
  2. PREDNISONE. [Suspect]
     Active Substance: PREDNISONE
     Indication: MARGINAL ZONE LYMPHOMA
     Dosage: THIRD CYCLE OF R-CHOP 2 WEEKS PRIOR TO PRESENTATION
  3. RITUXIMAB [Suspect]
     Active Substance: RITUXIMAB
     Indication: MARGINAL ZONE LYMPHOMA
     Dosage: THIRD CYCLE OF R-CHOP 2 WEEKS PRIOR TO PRESENTATION
  4. VINCRISTINE SULFATE. [Suspect]
     Active Substance: VINCRISTINE SULFATE
     Indication: MARGINAL ZONE LYMPHOMA
     Dosage: THIRD CYCLE OF R-CHOP 2 WEEKS PRIOR TO PRESENTATION
  5. CYCLOPHOSPHAMIDE. [Suspect]
     Active Substance: CYCLOPHOSPHAMIDE
     Indication: MARGINAL ZONE LYMPHOMA
     Dosage: THIRD CYCLE OF R-CHOP 2 WEEKS PRIOR TO PRESENTATION

REACTIONS (2)
  - Pancytopenia [Unknown]
  - Herpes zoster [Recovered/Resolved]
